FAERS Safety Report 5923085-X (Version None)
Quarter: 2008Q4

REPORT INFORMATION
  Report Type: 
  Country: None (occurrence: None)
  Receive Date: 20081018
  Receipt Date: 20081006
  Transmission Date: 20090506
  Serious: Yes (Other)
  Sender: FDA-Public Use
  Company Number: US-PFIZER INC-2008085274

PATIENT
  Sex: Female
  Weight: 73 kg

DRUGS (21)
  1. CHANTIX [Suspect]
     Indication: SMOKING CESSATION THERAPY
     Dates: start: 20080921, end: 20081004
  2. COPAXONE [Concomitant]
  3. ADDERALL 10 [Concomitant]
  4. TOPAMAX [Concomitant]
  5. ABILIFY [Concomitant]
  6. CYMBALTA [Concomitant]
  7. OXYCODONE HCL [Concomitant]
  8. MORPHINE [Concomitant]
  9. BACLOFEN [Concomitant]
  10. ROBAXIN [Concomitant]
  11. PEPCID [Concomitant]
  12. NEXIUM [Concomitant]
  13. AMLODIPINE [Concomitant]
  14. ARICEPT [Concomitant]
  15. KLONOPIN [Concomitant]
  16. ALLEGRA-D [Concomitant]
  17. AMANTADINE HCL [Concomitant]
  18. LIPITOR [Concomitant]
  19. POTASSIUM CHLORIDE [Concomitant]
  20. ALL OTHER THERAPEUTIC PRODUCTS [Concomitant]
  21. COLACE [Concomitant]

REACTIONS (2)
  - CONSTIPATION [None]
  - FAECALOMA [None]
